FAERS Safety Report 17664603 (Version 1)
Quarter: 2020Q2

REPORT INFORMATION
  Report Type: Spontaneous
  Country: US (occurrence: US)
  Receive Date: 20200413
  Receipt Date: 20200413
  Transmission Date: 20200713
  Serious: Yes (Hospitalization)
  Sender: FDA-Public Use
  Company Number: None

PATIENT
  Age: 72 Year
  Sex: Male
  Weight: 79 kg

DRUGS (1)
  1. NIVOLUMAB (NIVOLUMAB 10MG/ML INJ, SOLN) [Suspect]
     Active Substance: NIVOLUMAB
     Indication: ANAL CANCER STAGE III
     Dosage: ?          OTHER FREQUENCY:UD;?
     Route: 042
     Dates: start: 20200103

REACTIONS (3)
  - Thrombocytopenia [None]
  - Anaemia [None]
  - Leukopenia [None]

NARRATIVE: CASE EVENT DATE: 20200111
